FAERS Safety Report 4352109-9 (Version None)
Quarter: 2004Q2

REPORT INFORMATION
  Report Type: 
  Country: None (occurrence: None)
  Receive Date: 20040428
  Receipt Date: 20040420
  Transmission Date: 20050107
  Serious: Yes (Death)
  Sender: FDA-Public Use
  Company Number: 200411381GDS

PATIENT
  Age: 39 Year

DRUGS (3)
  1. KETOPROFEN [Suspect]
  2. ATENOLOL [Suspect]
  3. OXAZEPAM [Suspect]

REACTIONS (2)
  - CARDIO-RESPIRATORY ARREST [None]
  - INTENTIONAL OVERDOSE [None]
